FAERS Safety Report 21220641 (Version 1)
Quarter: 2022Q3

REPORT INFORMATION
  Report Type: Report from Study
  Country: SE (occurrence: SE)
  Receive Date: 20220817
  Receipt Date: 20220817
  Transmission Date: 20221027
  Serious: Yes (Death, Life-Threatening, Hospitalization, Other)
  Sender: FDA-Public Use
  Company Number: SE-Accord-267734

PATIENT
  Age: 16 Year
  Sex: Female

DRUGS (4)
  1. SERTRALINE [Suspect]
     Active Substance: SERTRALINE HYDROCHLORIDE
     Indication: Anxiety
  2. OLANZAPINE [Suspect]
     Active Substance: OLANZAPINE
     Indication: Anxiety
  3. RISPERIDONE [Suspect]
     Active Substance: RISPERIDONE
     Indication: Anxiety
  4. TRIMEPRAZINE [Suspect]
     Active Substance: TRIMEPRAZINE
     Indication: Agitation

REACTIONS (5)
  - Serotonin syndrome [Fatal]
  - Rhabdomyolysis [Fatal]
  - Off label use [Unknown]
  - Dystonia [Unknown]
  - Hyperthermia [Fatal]
